FAERS Safety Report 19776321 (Version 1)
Quarter: 2021Q3

REPORT INFORMATION
  Report Type: Spontaneous
  Country: US (occurrence: US)
  Receive Date: 20210902
  Receipt Date: 20210902
  Transmission Date: 20211014
  Serious: Yes (Death, Hospitalization)
  Sender: FDA-Public Use
  Company Number: US-GLAND PHARMA LIMITED-2021US005928

PATIENT
  Sex: Female

DRUGS (2)
  1. ADAVOSERTIB. [Suspect]
     Active Substance: ADAVOSERTIB
     Indication: TRIPLE NEGATIVE BREAST CANCER
     Dosage: 200 MG ORAL TWICE DAILY FOR FIVE DOSES OVER 2.5 DAYS
     Route: 048
  2. CISPLATIN. [Suspect]
     Active Substance: CISPLATIN
     Indication: TRIPLE NEGATIVE BREAST CANCER
     Dosage: 75 MG/M2, CYCLIC
     Route: 042

REACTIONS (8)
  - Abdominal pain [Unknown]
  - Neutropenia [Unknown]
  - Lactic acidosis [Unknown]
  - Respiratory failure [Unknown]
  - Hypotension [Unknown]
  - Duodenitis [Unknown]
  - Atrial fibrillation [Unknown]
  - Sepsis [Fatal]
